FAERS Safety Report 25285110 (Version 3)
Quarter: 2025Q2

REPORT INFORMATION
  Report Type: Report from Study
  Country: IL (occurrence: IL)
  Receive Date: 20250509
  Receipt Date: 20250524
  Transmission Date: 20250716
  Serious: Yes (Death, Hospitalization)
  Sender: ABBVIE
  Company Number: IL-ABBVIE-6256333

PATIENT
  Age: 64 Year
  Sex: Male

DRUGS (2)
  1. FOSCARBIDOPA\FOSLEVODOPA [Suspect]
     Active Substance: FOSCARBIDOPA\FOSLEVODOPA
     Indication: Parkinson^s disease
     Route: 050
  2. FOSCARBIDOPA\FOSLEVODOPA [Suspect]
     Active Substance: FOSCARBIDOPA\FOSLEVODOPA
     Route: 050
     Dates: start: 20201013

REACTIONS (8)
  - Death [Fatal]
  - Pneumonia aspiration [Recovering/Resolving]
  - Device issue [Recovered/Resolved]
  - Unevaluable event [Unknown]
  - Feeding disorder [Not Recovered/Not Resolved]
  - Stoma site discharge [Unknown]
  - Sepsis [Unknown]
  - Urinary tract infection [Unknown]

NARRATIVE: CASE EVENT DATE: 20250427
